FAERS Safety Report 6004462-8 (Version None)
Quarter: 2008Q4

REPORT INFORMATION
  Report Type: 
  Country: None (occurrence: None)
  Receive Date: 20081216
  Receipt Date: 20081210
  Transmission Date: 20090506
  Serious: Yes (Other)
  Sender: FDA-Public Use
  Company Number: US-ELI_LILLY_AND_COMPANY-US200812003251

PATIENT
  Age: 66 Year
  Sex: Male
  Weight: 83.9 kg

DRUGS (8)
  1. GEMZAR [Suspect]
     Indication: NON-SMALL CELL LUNG CANCER
     Dates: start: 19990101
  2. ALIMTA [Suspect]
     Indication: NON-SMALL CELL LUNG CANCER RECURRENT
     Dosage: 500 MG/M2, OTHER
     Dates: start: 20060127
  3. ALIMTA [Suspect]
     Dosage: 1000 MG/M2, OTHER
  4. CISPLATIN [Concomitant]
     Indication: NON-SMALL CELL LUNG CANCER
     Dates: start: 19990101
  5. TARCEVA [Concomitant]
     Indication: NON-SMALL CELL LUNG CANCER RECURRENT
     Dosage: UNK, UNK
     Dates: start: 20060101
  6. FOLIC ACID [Concomitant]
     Dosage: UNK, DAILY (1/D)
  7. VITAMIN B-12 [Concomitant]
     Dosage: UNK, OTHER
  8. DEXAMETHASONE [Concomitant]
     Dosage: UNK, UNK
     Route: 042

REACTIONS (10)
  - ABDOMINAL DISCOMFORT [None]
  - ADVERSE DRUG REACTION [None]
  - ANXIETY [None]
  - FATIGUE [None]
  - HEADACHE [None]
  - INCREASED TENDENCY TO BRUISE [None]
  - MOOD ALTERED [None]
  - NON-SMALL CELL LUNG CANCER RECURRENT [None]
  - RASH ERYTHEMATOUS [None]
  - SEXUAL RELATIONSHIP CHANGE [None]
